FAERS Safety Report 10755291 (Version 1)
Quarter: 2015Q1

REPORT INFORMATION
  Report Type: Spontaneous
  Country: US (occurrence: None)
  Receive Date: 20150123
  Receipt Date: 20150123
  Transmission Date: 20150721
  Serious: No
  Sender: FDA-Public Use
  Company Number: 2014TUS008252

PATIENT
  Age: 37 Year
  Sex: Female
  Weight: 59.9 kg

DRUGS (3)
  1. ENTYVIO [Suspect]
     Active Substance: VEDOLIZUMAB
     Indication: CROHN^S DISEASE
     Route: 042
     Dates: start: 20140827, end: 20140827
  2. 5-ASA (AMINOSALICYLIC ACID) [Suspect]
     Active Substance: MESALAMINE
     Indication: CROHN^S DISEASE
  3. AZULFIDINE [Suspect]
     Active Substance: SULFASALAZINE
     Indication: CROHN^S DISEASE

REACTIONS (2)
  - Urticaria [None]
  - Dyspnoea [None]

NARRATIVE: CASE EVENT DATE: 20140830
